FAERS Safety Report 20068415 (Version 1)
Quarter: 2021Q4

REPORT INFORMATION
  Report Type: Spontaneous
  Country: US (occurrence: None)
  Receive Date: 20211112
  Receipt Date: 20211112
  Transmission Date: 20220304
  Serious: Yes (Hospitalization)
  Sender: FDA-Public Use
  Company Number: None

PATIENT
  Age: 34 Year
  Sex: Female
  Weight: 58.95 kg

DRUGS (3)
  1. BICALUTAMIDE [Suspect]
     Active Substance: BICALUTAMIDE
     Dosage: FREQUENCY : DAILY;?
     Route: 048
     Dates: start: 20211015, end: 20211103
  2. NIVOLUMAB [Suspect]
     Active Substance: NIVOLUMAB
     Indication: Breast cancer
     Dosage: OTHER FREQUENCY : DAY 1, DAY 15, AND;?
     Route: 042
     Dates: start: 20211022, end: 20211022
  3. IPILIMUMAB [Suspect]
     Active Substance: IPILIMUMAB
     Dates: start: 20211022, end: 20211022

REACTIONS (4)
  - Neutropenia [None]
  - Rash [None]
  - Hepatic enzyme increased [None]
  - Pyrexia [None]

NARRATIVE: CASE EVENT DATE: 20211101
